FAERS Safety Report 5023788-8 (Version None)
Quarter: 2006Q2

REPORT INFORMATION
  Report Type: 
  Country: None (occurrence: None)
  Receive Date: 20060606
  Receipt Date: 20060522
  Transmission Date: 20061013
  Serious: Yes (Life-Threatening, Other)
  Sender: FDA-Public Use
  Company Number: HQWYE450222MAY06

PATIENT
  Age: 91 Year
  Sex: Male

DRUGS (9)
  1. PANTOPRAZOLE SODIUM [Suspect]
     Indication: GASTRITIS
     Dosage: SEE IMAGE
     Route: 048
     Dates: start: 20060314, end: 20060314
  2. PANTOPRAZOLE SODIUM [Suspect]
     Indication: GASTROOESOPHAGEAL REFLUX DISEASE
     Dosage: SEE IMAGE
     Route: 048
     Dates: start: 20060314, end: 20060314
  3. PANTOPRAZOLE SODIUM [Suspect]
     Indication: REFLUX OESOPHAGITIS
     Dosage: SEE IMAGE
     Route: 048
     Dates: start: 20060314, end: 20060314
  4. PANTOPRAZOLE SODIUM [Suspect]
     Indication: GASTRITIS
     Dosage: SEE IMAGE
     Route: 048
     Dates: start: 20060315, end: 20060315
  5. PANTOPRAZOLE SODIUM [Suspect]
     Indication: GASTROOESOPHAGEAL REFLUX DISEASE
     Dosage: SEE IMAGE
     Route: 048
     Dates: start: 20060315, end: 20060315
  6. PANTOPRAZOLE SODIUM [Suspect]
     Indication: REFLUX OESOPHAGITIS
     Dosage: SEE IMAGE
     Route: 048
     Dates: start: 20060315, end: 20060315
  7. IBUHEXAL (IBUPROFEN,) [Suspect]
     Dosage: ^DF^ ORAL
     Route: 048
     Dates: start: 20050719
  8. BISOPROLOL FUMARATE [Concomitant]
  9. TAMSULOSIN HCL [Concomitant]

REACTIONS (8)
  - ALANINE AMINOTRANSFERASE INCREASED [None]
  - ASPARTATE AMINOTRANSFERASE INCREASED [None]
  - BILIRUBIN CONJUGATED INCREASED [None]
  - BLOOD BILIRUBIN INCREASED [None]
  - C-REACTIVE PROTEIN INCREASED [None]
  - CONDITION AGGRAVATED [None]
  - GAMMA-GLUTAMYLTRANSFERASE INCREASED [None]
  - HEPATOTOXICITY [None]
